FAERS Safety Report 6116678-0 (Version None)
Quarter: 2009Q1

REPORT INFORMATION
  Report Type: 
  Country: None (occurrence: None)
  Receive Date: 20090314
  Receipt Date: 20081203
  Transmission Date: 20090719
  Serious: No
  Sender: FDA-Public Use
  Company Number: US-ABBOTT-08P-163-0491210-00

PATIENT
  Sex: Female

DRUGS (2)
  1. HUMIRA [Suspect]
     Indication: PSORIASIS
     Dates: start: 20081104, end: 20081203
  2. PAROXETINE HYDROCHLORIDE [Concomitant]
     Indication: NERVOUSNESS

REACTIONS (4)
  - INSOMNIA [None]
  - PALPITATIONS [None]
  - RASH [None]
  - SKIN EXFOLIATION [None]
